FAERS Safety Report 10590110 (Version 1)
Quarter: 2014Q4

REPORT INFORMATION
  Report Type: Spontaneous
  Country: None (occurrence: None)
  Receive Date: 20141117
  Receipt Date: 20141117
  Transmission Date: 20150529
  Serious: No
  Sender: FDA-Public Use
  Company Number: None

PATIENT
  Age: 6 Year
  Sex: Male
  Weight: 35.38 kg

DRUGS (1)
  1. POLYETHYLENE GLYCOL [Suspect]
     Active Substance: POLYETHYLENE GLYCOLS
     Indication: CONSTIPATION
     Dosage: 17 GRAMS  AS NEEDED  TAKEN BY MOUTH
     Route: 048

REACTIONS (10)
  - Condition aggravated [None]
  - Irritability [None]
  - Headache [None]
  - Depression [None]
  - Fear of death [None]
  - Faeces hard [None]
  - Crying [None]
  - Abdominal pain upper [None]
  - Abnormal behaviour [None]
  - Lethargy [None]

NARRATIVE: CASE EVENT DATE: 20141114
